FAERS Safety Report 5412266-X (Version None)
Quarter: 2007Q3

REPORT INFORMATION
  Report Type: 
  Country: None (occurrence: None)
  Receive Date: 20070809
  Receipt Date: 20070726
  Transmission Date: 20080115
  Serious: Yes (Life-Threatening, Hospitalization, Other)
  Sender: FDA-Public Use
  Company Number: IMP_03060_2007

PATIENT
  Age: 3 Year
  Sex: Male
  Weight: 17 kg

DRUGS (2)
  1. BUDEPRION 300 MG [Suspect]
     Indication: ACCIDENTAL EXPOSURE
     Dosage: 300 MG 8 TABLETS, ONCE ORAL
     Route: 048
  2. OSMOTICALLY ACTING LAXATIVES 150 ML [Suspect]
     Indication: OESOPHAGOGASTROSCOPY
     Dosage: INTRAVENOUS (NOT OTHERWISE SPECIFIED)
     Route: 042

REACTIONS (22)
  - ACCIDENTAL DRUG INTAKE BY CHILD [None]
  - ACUTE RESPIRATORY DISTRESS SYNDROME [None]
  - AREFLEXIA [None]
  - BLOOD POTASSIUM DECREASED [None]
  - BRADYCARDIA [None]
  - CARDIAC ARREST [None]
  - CARDIOTOXICITY [None]
  - CATHETER RELATED COMPLICATION [None]
  - DEVICE MIGRATION [None]
  - GRAND MAL CONVULSION [None]
  - HYPOTENSION [None]
  - HYPOXIA [None]
  - LUNG INFILTRATION [None]
  - PNEUMONIA ASPIRATION [None]
  - PROCEDURAL COMPLICATION [None]
  - PULMONARY OEDEMA [None]
  - RESPIRATORY RATE INCREASED [None]
  - SINUS TACHYCARDIA [None]
  - SOMNOLENCE [None]
  - SYNCOPE VASOVAGAL [None]
  - THERAPEUTIC RESPONSE DECREASED [None]
  - VOMITING [None]
